FAERS Safety Report 5075538-7 (Version None)
Quarter: 2006Q3

REPORT INFORMATION
  Report Type: 
  Country: None (occurrence: None)
  Receive Date: 20060803
  Receipt Date: 20060803
  Transmission Date: 20061208
  Serious: Yes (Hospitalization)
  Sender: FDA-Public Use
  Company Number: None

PATIENT
  Sex: Male
  Weight: 80.7403 kg

DRUGS (3)
  1. CARBOPLATIN [Suspect]
     Indication: NON-SMALL CELL LUNG CANCER
     Dosage: 284MG WEEKLY X 5
     Dates: start: 20060623, end: 20060721
  2. PACLETAXEL [Suspect]
     Indication: NON-SMALL CELL LUNG CANCER
     Dosage: 93 MG WEEKLY X 5
     Dates: start: 20060623, end: 20060721
  3. RADIATION THERAPY [Concomitant]

REACTIONS (17)
  - ANOREXIA [None]
  - BLOOD POTASSIUM DECREASED [None]
  - CONDITION AGGRAVATED [None]
  - CORONARY ARTERY OCCLUSION [None]
  - DEPRESSION [None]
  - DRUG INEFFECTIVE [None]
  - DYSGEUSIA [None]
  - DYSPHONIA [None]
  - FATIGUE [None]
  - HAEMOGLOBIN DECREASED [None]
  - HICCUPS [None]
  - INSOMNIA [None]
  - NEUTROPHIL COUNT INCREASED [None]
  - ODYNOPHAGIA [None]
  - OESOPHAGITIS [None]
  - ORAL CANDIDIASIS [None]
  - SINUS TACHYCARDIA [None]
